FAERS Safety Report 10847592 (Version 1)
Quarter: 2015Q1

REPORT INFORMATION
  Report Type: Spontaneous
  Country: US (occurrence: US)
  Receive Date: 20150220
  Receipt Date: 20150220
  Transmission Date: 20150721
  Serious: No
  Sender: FDA-Public Use
  Company Number: US-CELGENEUS-163-21880-14022293

PATIENT
  Sex: Female
  Weight: 65.8 kg

DRUGS (1)
  1. REVLIMID [Suspect]
     Active Substance: LENALIDOMIDE
     Indication: PLASMA CELL MYELOMA
     Dosage: 5 MILLIGRAM
     Route: 048
     Dates: start: 20110811

REACTIONS (4)
  - Diarrhoea [Unknown]
  - Constipation [Unknown]
  - Throat irritation [Unknown]
  - Increased tendency to bruise [Unknown]
